FAERS Safety Report 8312675-5 (Version None)
Quarter: 2012Q2

REPORT INFORMATION
  Report Type: 
  Country: None (occurrence: None)
  Receive Date: 20120424
  Receipt Date: 20120420
  Transmission Date: 20120825
  Serious: Yes (Hospitalization, Other)
  Sender: FDA-Public Use
  Company Number: ADR-2012-00321

PATIENT
  Age: 6 Year
  Sex: Female

DRUGS (1)
  1. BACLOFEN [Suspect]
     Dosage: SEE B5

REACTIONS (7)
  - EPILEPSY [None]
  - CONDITION AGGRAVATED [None]
  - ASTHENIA [None]
  - CONTUSION [None]
  - HYPERTONIA [None]
  - OBSTRUCTIVE AIRWAYS DISORDER [None]
  - BRONCHITIS [None]
